FAERS Safety Report 5680438-5 (Version None)
Quarter: 2008Q1

REPORT INFORMATION
  Report Type: 
  Country: None (occurrence: None)
  Receive Date: 20080326
  Receipt Date: 20080305
  Transmission Date: 20080703
  Serious: Yes (Hospitalization)
  Sender: FDA-Public Use
  Company Number: A0715286A

PATIENT
  Sex: Female

DRUGS (2)
  1. LAMICTAL [Suspect]
     Indication: DRUG USE FOR UNKNOWN INDICATION
     Dosage: 50MG UNKNOWN
     Route: 048
     Dates: start: 20080115, end: 20080219
  2. UNKNOWN [Concomitant]

REACTIONS (4)
  - LUNG INJURY [None]
  - RESPIRATION ABNORMAL [None]
  - STEVENS-JOHNSON SYNDROME [None]
  - VASCULITIS [None]
